FAERS Safety Report 13318675 (Version 1)
Quarter: 2017Q1

REPORT INFORMATION
  Report Type: Spontaneous
  Country: JP (occurrence: JP)
  Receive Date: 20170310
  Receipt Date: 20170310
  Transmission Date: 20170428
  Serious: Yes (Life-Threatening, Hospitalization, Other)
  Sender: FDA-Public Use
  Company Number: JP-SUN PHARMACEUTICAL INDUSTRIES LTD-2017RR-135456

PATIENT
  Age: 70 Year
  Sex: Female

DRUGS (5)
  1. ACETYLSALICYLIC ACID [Suspect]
     Active Substance: ASPIRIN
     Indication: CAPSULAR WARNING SYNDROME
     Dosage: 100 MG
     Route: 065
  2. EDARAVONE [Suspect]
     Active Substance: EDARAVONE
     Indication: CAPSULAR WARNING SYNDROME
     Dosage: 60 MG
     Route: 065
  3. ARGATROBAN. [Suspect]
     Active Substance: ARGATROBAN
     Indication: CAPSULAR WARNING SYNDROME
     Dosage: 60 MG
     Route: 065
  4. ATORVASTATIN [Suspect]
     Active Substance: ATORVASTATIN
     Indication: CAPSULAR WARNING SYNDROME
     Dosage: 10 MG
     Route: 065
  5. CILOSTAZOL. [Suspect]
     Active Substance: CILOSTAZOL
     Indication: CAPSULAR WARNING SYNDROME
     Dosage: 200 MG
     Route: 065

REACTIONS (2)
  - Drug ineffective [Unknown]
  - Cerebral infarction [Unknown]
